FAERS Safety Report 4859838-9 (Version None)
Quarter: 2005Q4

REPORT INFORMATION
  Report Type: 
  Country: None (occurrence: None)
  Receive Date: 20051219
  Receipt Date: 20051214
  Transmission Date: 20060501
  Serious: Yes (Life-Threatening)
  Sender: FDA-Public Use
  Company Number: PHBS2005IT18465

PATIENT
  Age: 22 Year
  Sex: Female

DRUGS (5)
  1. TEGRETOL [Suspect]
     Indication: EPILEPSY
     Dosage: 600 MG/DAY
     Route: 048
     Dates: start: 20051107, end: 20051115
  2. DIFLUCAN [Suspect]
     Indication: ORAL CANDIDIASIS
     Route: 048
     Dates: start: 20051107, end: 20051115
  3. CLOBAZAM [Concomitant]
     Dosage: 38 MG/DAY
     Route: 048
     Dates: start: 20051107, end: 20051115
  4. NEURONTIN [Concomitant]
     Dosage: 900 MG/DAY
     Route: 048
     Dates: start: 20051107, end: 20051115
  5. GARDENALE [Concomitant]
     Dosage: 100 MG/DAY
     Route: 048
     Dates: start: 20051107, end: 20051115

REACTIONS (17)
  - ALANINE AMINOTRANSFERASE INCREASED [None]
  - ASPARTATE AMINOTRANSFERASE INCREASED [None]
  - BLOOD CREATINE PHOSPHOKINASE INCREASED [None]
  - BLOOD LACTATE DEHYDROGENASE INCREASED [None]
  - COAGULOPATHY [None]
  - GAMMA-GLUTAMYLTRANSFERASE INCREASED [None]
  - HEPATIC FAILURE [None]
  - HYPERPYREXIA [None]
  - HYPOTENSION [None]
  - JAUNDICE [None]
  - NEUROLEPTIC MALIGNANT SYNDROME [None]
  - OLIGURIA [None]
  - RENAL FAILURE [None]
  - RHABDOMYOLYSIS [None]
  - SOPOR [None]
  - VOMITING [None]
  - WHITE BLOOD CELL COUNT INCREASED [None]
